FAERS Safety Report 10603343 (Version 1)
Quarter: 2014Q4

REPORT INFORMATION
  Report Type: Spontaneous
  Country: US (occurrence: US)
  Receive Date: 20141124
  Receipt Date: 20141124
  Transmission Date: 20150529
  Serious: No
  Sender: FDA-Public Use
  Company Number: US-009507513-1411USA009585

PATIENT
  Sex: Male

DRUGS (1)
  1. NITRO-DUR [Suspect]
     Active Substance: NITROGLYCERIN
     Route: 062

REACTIONS (4)
  - Expired product administered [Unknown]
  - Product quality issue [Unknown]
  - Product packaging confusion [Unknown]
  - No adverse event [Unknown]
